FAERS Safety Report 6534364-X (Version None)
Quarter: 2010Q1

REPORT INFORMATION
  Report Type: 
  Country: None (occurrence: None)
  Receive Date: 20100112
  Receipt Date: 20100104
  Transmission Date: 20100710
  Serious: Yes (Death)
  Sender: FDA-Public Use
  Company Number: US-PFIZER INC-2010000981

PATIENT
  Age: 50 Year
  Sex: Female

DRUGS (6)
  1. PARACETAMOL [Suspect]
     Route: 048
  2. GABAPENTIN [Suspect]
     Route: 048
  3. HYDROXYZINE PAMOATE [Suspect]
     Route: 048
  4. ACETAMINOPHEN AND HYDROCODONE BITARTRATE [Suspect]
     Route: 048
  5. LORAZEPAM [Suspect]
     Route: 048
  6. HYOSCYAMINE [Suspect]

REACTIONS (1)
  - COMPLETED SUICIDE [None]
